FAERS Safety Report 10254738 (Version 1)
Quarter: 2014Q2

REPORT INFORMATION
  Report Type: Spontaneous
  Country: US (occurrence: US)
  Receive Date: 20140624
  Receipt Date: 20140624
  Transmission Date: 20141212
  Serious: No
  Sender: FDA-Public Use
  Company Number: US-AMGEN-USASP2014046497

PATIENT
  Age: 64 Year
  Sex: Female
  Weight: 59.86 kg

DRUGS (8)
  1. ENBREL [Suspect]
     Indication: PRODUCT USED FOR UNKNOWN INDICATION
     Dosage: 50 MG, QWK
     Route: 058
  2. VIACTIV                            /00751501/ [Concomitant]
     Dosage: UNK
  3. METHOTREXATE [Concomitant]
     Dosage: 2.5 MG, UNK
  4. LIPITOR [Concomitant]
     Dosage: 10 MG, UNK
  5. TUMS                               /00193601/ [Concomitant]
     Dosage: 500 MG, UNK
  6. LEVOTHYROXIN [Concomitant]
     Dosage: 88 MUG, UNK
  7. ATORVASTATIN [Concomitant]
     Dosage: 10 MG, UNK
  8. FOLIC ACID [Concomitant]
     Dosage: UNK

REACTIONS (1)
  - Osteoporosis [Unknown]
